FAERS Safety Report 5070046-1 (Version None)
Quarter: 2006Q3

REPORT INFORMATION
  Report Type: 
  Country: None (occurrence: None)
  Receive Date: 20060731
  Receipt Date: 20060726
  Transmission Date: 20061208
  Serious: Yes (Life-Threatening)
  Sender: FDA-Public Use
  Company Number: DEWYE362226JUL06

PATIENT
  Age: 66 Year
  Sex: Female

DRUGS (1)
  1. TYGACIL [Suspect]
     Indication: PNEUMONIA
     Dosage: 50 MG 2X PER 1 DAY
     Route: 042
     Dates: start: 20060603, end: 20060609

REACTIONS (3)
  - BLOOD ALBUMIN DECREASED [None]
  - HEPATIC FAILURE [None]
  - PROTHROMBIN TIME SHORTENED [None]
